FAERS Safety Report 18222795 (Version 1)
Quarter: 2020Q3

REPORT INFORMATION
  Report Type: Spontaneous
  Country: MX (occurrence: MX)
  Receive Date: 20200902
  Receipt Date: 20200902
  Transmission Date: 20201103
  Serious: Yes (Other)
  Sender: FDA-Public Use
  Company Number: MX-AMGEN-MEXSP2020141002

PATIENT

DRUGS (1)
  1. PROLIA [Suspect]
     Active Substance: DENOSUMAB
     Indication: OSTEOPOROSIS POSTMENOPAUSAL
     Dosage: UNK
     Route: 065

REACTIONS (12)
  - Spinal pain [Unknown]
  - Pain [Unknown]
  - Arthralgia [Unknown]
  - Kyphosis [Unknown]
  - Musculoskeletal pain [Unknown]
  - Humerus fracture [Unknown]
  - Radius fracture [Unknown]
  - Pain in extremity [Unknown]
  - Hip fracture [Unknown]
  - Balance disorder [Unknown]
  - Fall [Unknown]
  - Spinal fracture [Unknown]
